FAERS Safety Report 14364377 (Version 1)
Quarter: 2018Q1

REPORT INFORMATION
  Report Type: Spontaneous
  Country: US (occurrence: US)
  Receive Date: 20180106
  Receipt Date: 20180106
  Transmission Date: 20180509
  Serious: No
  Sender: FDA-Public Use
  Company Number: None

PATIENT
  Age: 76 Year
  Sex: Male
  Weight: 83.6 kg

DRUGS (3)
  1. DEXAMETHASONE. [Suspect]
     Active Substance: DEXAMETHASONE
     Dates: end: 20171114
  2. VELCADE [Suspect]
     Active Substance: BORTEZOMIB
     Dates: end: 20171113
  3. LENALIDOMIDE (CC-5013) [Suspect]
     Active Substance: LENALIDOMIDE
     Dates: end: 20180103

REACTIONS (10)
  - Gastric ulcer haemorrhage [None]
  - Constipation [None]
  - Decreased appetite [None]
  - Abdominal tenderness [None]
  - Nausea [None]
  - Abdominal pain upper [None]
  - Eructation [None]
  - Gastric cancer [None]
  - Therapy cessation [None]
  - Oesophageal adenocarcinoma [None]

NARRATIVE: CASE EVENT DATE: 20180104
